FAERS Safety Report 9443539 (Version 1)
Quarter: 2013Q3

REPORT INFORMATION
  Report Type: Spontaneous
  Country: GB (occurrence: None)
  Receive Date: 20130802
  Receipt Date: 20130802
  Transmission Date: 20140515
  Serious: Yes (Disabling)
  Sender: FDA-Public Use
  Company Number: AUR-APL-2013-06239

PATIENT
  Age: 67 Year
  Sex: Male
  Weight: 143 kg

DRUGS (13)
  1. PIOGLITAZONE [Suspect]
     Indication: PRODUCT USED FOR UNKNOWN INDICATION
  2. ASPIRIN (ACETYLSALCYLIC ACID) [Concomitant]
  3. ATORVASTATIN (ATORVASTATIN) [Concomitant]
  4. CHLORORHEXIDINE GLUCONATE (CHLOROHEXIDINE GLUCONATE [Concomitant]
  5. CO-AMILOFRUSE (FRUMIL) [Concomitant]
  6. CODEINE PHOSPHATE (CODEINE PHOSPHATE) [Concomitant]
  7. INDAPAMIDE (INDAPAMIDE) [Concomitant]
  8. LANSOPRAZOLE (LANSOPRAZOLE) [Concomitant]
  9. LOPERAMIDE (LOPERAMIDE) [Concomitant]
  10. METFORMIN (METFORMIN) [Concomitant]
  11. NYSTAN (NYSTATIN) [Concomitant]
  12. RAMIPRIL (RAMIPRIL) [Concomitant]
  13. VENLAFAXINE (VENLAFAXINE) [Concomitant]

REACTIONS (1)
  - Cardiac failure congestive [None]
